FAERS Safety Report 5106224-2 (Version None)
Quarter: 2006Q3

REPORT INFORMATION
  Report Type: 
  Country: None (occurrence: None)
  Receive Date: 20060912
  Receipt Date: 20060905
  Transmission Date: 20061208
  Serious: Yes (Hospitalization, Other)
  Sender: FDA-Public Use
  Company Number: 2006106973

PATIENT
  Sex: Male

DRUGS (6)
  1. ATORVASTATIN CALCIUM [Suspect]
     Indication: HYPERCHOLESTEROLAEMIA
     Dosage: 10 MG (10 MG, 1 IN 1 D),ORAL
     Route: 048
     Dates: start: 20050701
  2. METFORMIN HCL [Suspect]
     Indication: DRUG USE FOR UNKNOWN INDICATION
     Dosage: (850 MG), ORAL
     Route: 048
  3. GLICLAZIDE (GLICLAZIDE) [Concomitant]
  4. ASPIRIN [Concomitant]
  5. METOPROLOL SUCCINATE [Concomitant]
  6. ISOSORBIDE MONONITRATE [Concomitant]

REACTIONS (4)
  - ARRHYTHMIA [None]
  - MUSCLE ATROPHY [None]
  - SOMNOLENCE [None]
  - WEIGHT DECREASED [None]
